FAERS Safety Report 19503833 (Version 6)
Quarter: 2021Q4

REPORT INFORMATION
  Report Type: Spontaneous
  Country: US (occurrence: US)
  Receive Date: 20210707
  Receipt Date: 20211213
  Transmission Date: 20220303
  Serious: No
  Sender: FDA-Public Use
  Company Number: US-BRISTOL-MYERS SQUIBB COMPANY-BMS-2021-066191

PATIENT
  Age: 62 Year
  Sex: Female

DRUGS (4)
  1. ORENCIA [Suspect]
     Active Substance: ABATACEPT
     Indication: Rheumatoid arthritis
     Dosage: 125 MILLIGRAM, QWK
     Route: 058
     Dates: start: 20190628
  2. ORENCIA [Suspect]
     Active Substance: ABATACEPT
     Indication: Asthma
     Dosage: 125 MILLIGRAM, QWK
     Route: 058
     Dates: start: 201906
  3. DUPIXENT [Suspect]
     Active Substance: DUPILUMAB
     Indication: Rheumatoid arthritis
     Dosage: 300 MILLIGRAM, EVERY OTHER WEEK
     Route: 058
     Dates: start: 20201015
  4. DUPIXENT [Suspect]
     Active Substance: DUPILUMAB
     Indication: Asthma

REACTIONS (9)
  - Skin exfoliation [Recovered/Resolved]
  - Orthostatic hypotension [Unknown]
  - Tongue coated [Unknown]
  - Tongue discolouration [Unknown]
  - Sputum discoloured [Unknown]
  - Dry mouth [Recovered/Resolved]
  - Saliva altered [Unknown]
  - Mental status changes [Unknown]
  - Dry skin [Unknown]
